FAERS Safety Report 7360641-9 (Version None)
Quarter: 2011Q1

REPORT INFORMATION
  Report Type: 
  Country: None (occurrence: None)
  Receive Date: 20110318
  Receipt Date: 20110310
  Transmission Date: 20110831
  Serious: Yes (Hospitalization)
  Sender: FDA-Public Use
  Company Number: JP-SANOFI-AVENTIS-2011SA015185

PATIENT
  Age: 76 Year
  Sex: Male
  Weight: 53 kg

DRUGS (11)
  1. ASPIRIN [Suspect]
     Indication: THROMBOSIS PROPHYLAXIS
     Route: 048
     Dates: start: 20100527
  2. CRESTOR [Suspect]
     Route: 048
     Dates: start: 20100512
  3. TAKEPRON [Suspect]
     Indication: GASTRITIS PROPHYLAXIS
     Route: 048
     Dates: start: 20100512
  4. ARTIST [Suspect]
     Route: 048
     Dates: start: 20110122
  5. ALESION [Suspect]
     Route: 048
     Dates: start: 20100723
  6. BLINDED THERAPY [Suspect]
     Route: 065
     Dates: start: 20101016
  7. BLINDED THERAPY [Suspect]
     Route: 048
     Dates: start: 20100917, end: 20101015
  8. ARTIST [Suspect]
     Indication: CARDIAC FAILURE
     Route: 048
     Dates: start: 20100525, end: 20110121
  9. LASIX [Suspect]
     Route: 048
     Dates: start: 20100611
  10. PLAVIX [Suspect]
     Indication: THROMBOSIS PROPHYLAXIS
     Route: 048
     Dates: start: 20100527
  11. BLOPRESS [Suspect]
     Indication: CARDIAC FAILURE
     Route: 048
     Dates: start: 20100512

REACTIONS (2)
  - IN-STENT CORONARY ARTERY RESTENOSIS [None]
  - ANGINA PECTORIS [None]
